FAERS Safety Report 6543644-3 (Version None)
Quarter: 2010Q1

REPORT INFORMATION
  Report Type: 
  Country: None (occurrence: None)
  Receive Date: 20100120
  Receipt Date: 20100115
  Transmission Date: 20100710
  Serious: Yes (Hospitalization, Other)
  Sender: FDA-Public Use
  Company Number: FR-MERCK-0905FRA00016

PATIENT
  Age: 70 Year
  Sex: Female

DRUGS (13)
  1. FOSAMAX PLUS D [Suspect]
     Indication: OSTEOPOROSIS
     Route: 048
     Dates: start: 20070101, end: 20090401
  2. AMBROXOL HYDROCHLORIDE AND DOXYCYCLINE HYCLATE [Concomitant]
     Indication: ASTHMA
     Route: 048
  3. BROMHEXINE HYDROCHLORIDE [Concomitant]
     Indication: ASTHMA
     Route: 048
  4. THEOPHYLLINE [Concomitant]
     Indication: ASTHMA
     Route: 048
  5. CETIRIZINE HYDROCHLORIDE [Concomitant]
     Indication: ASTHMA
     Route: 048
  6. FORMOTEROL FUMARATE [Concomitant]
     Indication: ASTHMA
     Route: 055
  7. MOMETASONE FUROATE [Concomitant]
     Indication: ASTHMA
     Route: 065
  8. ALBUTEROL SULFATE [Concomitant]
     Indication: ASTHMA
     Route: 055
  9. BECLOMETHASONE DIPROPIONATE [Concomitant]
     Indication: ASTHMA
     Route: 055
  10. VERAPAMIL HYDROCHLORIDE [Concomitant]
     Indication: OBSTRUCTION GASTRIC
     Route: 048
  11. FENOFIBRATE [Concomitant]
     Indication: HYPERCHOLESTEROLAEMIA
     Route: 048
  12. GLYBURIDE [Concomitant]
     Indication: DIABETES MELLITUS
     Route: 048
  13. CALCIUM CARBONATE AND CHOLECALCIFEROL [Concomitant]
     Indication: OSTEOPOROSIS
     Route: 048

REACTIONS (2)
  - BLADDER CANCER [None]
  - COLON CANCER [None]
